FAERS Safety Report 8401559-X (Version None)
Quarter: 2012Q2

REPORT INFORMATION
  Report Type: 
  Country: None (occurrence: None)
  Receive Date: 20120601
  Receipt Date: 20120528
  Transmission Date: 20120825
  Serious: Yes (Other)
  Sender: FDA-Public Use
  Company Number: US-JNJFOC-20120520247

PATIENT
  Age: 59 Year
  Sex: Female

DRUGS (3)
  1. DOXIL [Suspect]
     Indication: BREAST CANCER
     Dosage: USED FOR 1-6 MONTHS
     Route: 042
  2. CARBOPLATIN [Interacting]
     Indication: BREAST CANCER
     Dosage: USED FOR 1-4 MONTHS
     Route: 065
  3. BEVACIZUMAB [Interacting]
     Indication: BREAST CANCER
     Dosage: USED FOR 1-6 MONTHS
     Route: 065

REACTIONS (2)
  - PANCREATITIS [None]
  - DRUG INTERACTION [None]
